FAERS Safety Report 6376315-7 (Version None)
Quarter: 2009Q3

REPORT INFORMATION
  Report Type: 
  Country: None (occurrence: None)
  Receive Date: 20090922
  Receipt Date: 20090922
  Transmission Date: 20100115
  Serious: Yes (Hospitalization)
  Sender: FDA-Public Use
  Company Number: None

PATIENT
  Sex: Male

DRUGS (2)
  1. SKELAXIN [Suspect]
     Indication: MYALGIA
     Dosage: 800MG UNKNOWN BY MOUTH, BOTH TIMES { 1 WK USE
     Route: 048
     Dates: start: 20070401
  2. SKELAXIN [Suspect]
     Indication: MYALGIA
     Dosage: 800MG UNKNOWN BY MOUTH, BOTH TIMES { 1 WK USE
     Route: 048
     Dates: start: 20090801

REACTIONS (1)
  - IDIOPATHIC THROMBOCYTOPENIC PURPURA [None]
